FAERS Safety Report 7526594-5 (Version None)
Quarter: 2011Q2

REPORT INFORMATION
  Report Type: 
  Country: None (occurrence: None)
  Receive Date: 20110606
  Receipt Date: 20110526
  Transmission Date: 20111010
  Serious: Yes (Hospitalization)
  Sender: FDA-Public Use
  Company Number: BR-ASTRAZENECA-2011SE33213

PATIENT
  Age: 63 Year
  Sex: Male
  Weight: 85 kg

DRUGS (7)
  1. ATACAND HCT [Suspect]
     Indication: HYPERTENSION
     Dosage: 8/12.5 MG, ONCE DAILY
     Route: 048
     Dates: start: 20080101, end: 20110401
  2. METOPROLOL SUCCINATE [Suspect]
     Route: 048
     Dates: start: 20101101
  3. ASPIRIN [Concomitant]
  4. ATACAND HCT [Suspect]
     Dosage: 8/12.5 MG
     Route: 048
  5. SOMALGIN [Concomitant]
     Route: 048
     Dates: start: 20080101, end: 20101101
  6. ATACAND [Suspect]
     Indication: HYPERTENSION
     Route: 048
     Dates: start: 20110401, end: 20110501
  7. SIMVASTATIN [Concomitant]
     Route: 048
     Dates: start: 20020101

REACTIONS (6)
  - CHEST PAIN [None]
  - VASODILATION PROCEDURE [None]
  - DRUG INEFFECTIVE [None]
  - VENOUS STENT INSERTION [None]
  - BLOOD PRESSURE INADEQUATELY CONTROLLED [None]
  - VENOUS OCCLUSION [None]
